FAERS Safety Report 20297871 (Version 2)
Quarter: 2022Q2

REPORT INFORMATION
  Report Type: Report from Study
  Country: IN (occurrence: IN)
  Receive Date: 20220105
  Receipt Date: 20220420
  Transmission Date: 20220720
  Serious: Yes (Hospitalization, Other)
  Sender: FDA-Public Use
  Company Number: IN-NOVARTISPH-NVSC2021IN301178

PATIENT
  Age: 36 Year
  Sex: Male

DRUGS (20)
  1. SIMULECT [Suspect]
     Active Substance: BASILIXIMAB
     Indication: Renal transplant
     Dosage: 20 MG
     Route: 065
     Dates: start: 20211202, end: 20211206
  2. CEFOPERAZONE SODIUM\SULBACTAM SODIUM [Concomitant]
     Active Substance: CEFOPERAZONE SODIUM\SULBACTAM SODIUM
     Indication: Product used for unknown indication
     Dosage: 1.5 G, Q12H
     Route: 042
  3. SOLU-MEDROL [Concomitant]
     Active Substance: METHYLPREDNISOLONE SODIUM SUCCINATE
     Indication: Product used for unknown indication
     Dosage: 250 MG (+100 ML NORMAL SALINE OVER 1 HOUR)
     Route: 065
  4. LAPINE T-LYMPHOCYTE IMMUNE GLOBULIN [Concomitant]
     Active Substance: LAPINE T-LYMPHOCYTE IMMUNE GLOBULIN
     Indication: Product used for unknown indication
     Dosage: 100 MG (D 5 % OVER 3 HOUR GIVEN)
     Route: 065
  5. MYCOPHENOLATE MOFETIL [Concomitant]
     Active Substance: MYCOPHENOLATE MOFETIL
     Indication: Product used for unknown indication
     Dosage: 360 MG, Q12H
     Route: 048
  6. TACROLIMUS [Concomitant]
     Active Substance: TACROLIMUS
     Indication: Product used for unknown indication
     Dosage: 1.5 MG, Q12H
     Route: 048
  7. AMLODIPINE BESYLATE [Concomitant]
     Active Substance: AMLODIPINE BESYLATE
     Indication: Product used for unknown indication
     Dosage: 5 MG, Q12H
     Route: 048
  8. LEVOFLOXACIN [Concomitant]
     Active Substance: LEVOFLOXACIN
     Indication: Product used for unknown indication
     Dosage: 100 ML, Q24H
     Route: 065
  9. METRONIDAZOLE [Concomitant]
     Active Substance: METRONIDAZOLE
     Indication: Product used for unknown indication
     Dosage: 100 ML, Q8H
     Route: 065
  10. FORCAN [Concomitant]
     Indication: Product used for unknown indication
     Dosage: 100 ML, Q24H
     Route: 065
  11. FLUCONAZOLE [Concomitant]
     Active Substance: FLUCONAZOLE
     Indication: Product used for unknown indication
     Dosage: 100 MG, Q24H
     Route: 048
  12. VALGANCICLOVIR [Concomitant]
     Active Substance: VALGANCICLOVIR
     Indication: Product used for unknown indication
     Dosage: 450 MG (AT 12 PM)
     Route: 048
  13. LOOZ [Concomitant]
     Indication: Product used for unknown indication
     Dosage: 10 ML (AT BED TIME)
     Route: 065
  14. LOOZ [Concomitant]
     Dosage: 10 ML (AT BED TIME)
     Route: 048
  15. CEFTUM [Concomitant]
     Indication: Product used for unknown indication
     Dosage: 500 MG, Q12H
     Route: 048
  16. PANTOPRAZOLE SODIUM [Concomitant]
     Active Substance: PANTOPRAZOLE SODIUM
     Indication: Product used for unknown indication
     Dosage: 40 MG (6 AM BEFORE BREAKFAST)
     Route: 048
  17. PREDNISOLONE [Concomitant]
     Active Substance: PREDNISOLONE
     Indication: Product used for unknown indication
     Dosage: 40 MG (AT 6 AM)
     Route: 048
  18. CYMGAL [Concomitant]
     Indication: Product used for unknown indication
     Dosage: 450 MG (AT 12 PM)
     Route: 065
  19. EPITRIL [Concomitant]
     Indication: Product used for unknown indication
     Dosage: 0.5 MG, PRN
     Route: 048
  20. MIRABEGRON [Concomitant]
     Active Substance: MIRABEGRON
     Indication: Product used for unknown indication
     Dosage: 50 MG (AT BED TIME FOR 10 DAYS)
     Route: 048

REACTIONS (9)
  - Kidney transplant rejection [Not Recovered/Not Resolved]
  - Renal tubular injury [Not Recovered/Not Resolved]
  - Idiopathic pulmonary fibrosis [Unknown]
  - Renal tubular atrophy [Unknown]
  - Kidney fibrosis [Unknown]
  - Inflammation [Unknown]
  - Tubulointerstitial nephritis [Unknown]
  - Tissue injury [Unknown]
  - Glomerulonephritis [Unknown]

NARRATIVE: CASE EVENT DATE: 20211216
